FAERS Safety Report 5505875-0 (Version None)
Quarter: 2007Q4

REPORT INFORMATION
  Report Type: 
  Country: None (occurrence: None)
  Receive Date: 20071102
  Receipt Date: 20071030
  Transmission Date: 20080405
  Serious: Yes (Life-Threatening)
  Sender: FDA-Public Use
  Company Number: GB-MERCK-0710GBR00130

PATIENT
  Age: 47 Year
  Sex: Male

DRUGS (2)
  1. TIMOPTIC [Suspect]
     Route: 047
     Dates: start: 20050421
  2. XALATAN [Suspect]
     Route: 047
     Dates: start: 20050421

REACTIONS (2)
  - ACROCHORDON [None]
  - BASAL CELL CARCINOMA [None]
